APPROVED DRUG PRODUCT: DOXYCYCLINE HYCLATE
Active Ingredient: DOXYCYCLINE HYCLATE
Strength: EQ 100MG BASE
Dosage Form/Route: CAPSULE;ORAL
Application: A212610 | Product #002
Applicant: ZHEJIANG YONGTAI PHARMACEUTICAL CO LTD
Approved: Mar 31, 2020 | RLD: No | RS: No | Type: DISCN